FAERS Safety Report 4775091-9 (Version None)
Quarter: 2005Q3

REPORT INFORMATION
  Report Type: 
  Country: None (occurrence: None)
  Receive Date: 20050920
  Receipt Date: 20050915
  Transmission Date: 20060218
  Serious: Yes (Hospitalization)
  Sender: FDA-Public Use
  Company Number: ESWYE963608SEP05

PATIENT
  Age: 69 Year
  Sex: Male

DRUGS (2)
  1. TAZOCEL (PIPERACILLIN/TAZOBACTAM, INJECTION) [Suspect]
     Indication: RESPIRATORY TRACT INFECTION
     Dosage: 2.25 G 1X PER 6 HR
     Route: 042
     Dates: start: 20050904
  2. ACETAMINOPHEN [Concomitant]

REACTIONS (2)
  - INJECTION SITE EXTRAVASATION [None]
  - INJECTION SITE OEDEMA [None]
